FAERS Safety Report 4481070-1 (Version None)
Quarter: 2004Q4

REPORT INFORMATION
  Report Type: 
  Country: None (occurrence: None)
  Receive Date: 20041021
  Receipt Date: 20041011
  Transmission Date: 20050328
  Serious: Yes (Hospitalization)
  Sender: FDA-Public Use
  Company Number: GB-ABBOTT-04P-167-0277159-00

PATIENT
  Age: 29 Year
  Sex: Male

DRUGS (2)
  1. ERYTHROMYCIN BASE [Suspect]
     Indication: SKIN INFECTION
     Route: 048
     Dates: start: 20040618, end: 20040625
  2. TERBINAFINE [Suspect]
     Indication: FUNGAL SKIN INFECTION
     Route: 048
     Dates: start: 20040618, end: 20040707

REACTIONS (3)
  - ACUTE GENERALISED EXANTHEMATOUS PUSTULOSIS [None]
  - BLOOD ALBUMIN DECREASED [None]
  - PYREXIA [None]
